FAERS Safety Report 7636000 (Version 2)
Quarter: 2013Q3

REPORT INFORMATION
  Report Type: Spontaneous
  Country: US (occurrence: US)
  Receive Date: 20101021
  Receipt Date: 20130906
  Transmission Date: 20140515
  Serious: Yes (Death, Other)
  Sender: FDA-Public Use
  Company Number: US-RANBAXY-2010US-38802

PATIENT
  Age: 36 Year
  Sex: Male

DRUGS (1)
  1. METFORMIN HYDROCHLORIDE [Suspect]
     Indication: HYPERGLYCAEMIA
     Dosage: 500 MG, BID
     Route: 065

REACTIONS (5)
  - Multi-organ failure [Fatal]
  - Lactic acidosis [Unknown]
  - Hepatorenal syndrome [Fatal]
  - Partial seizures [Unknown]
  - Malaise [Unknown]
